FAERS Safety Report 5163954-4 (Version None)
Quarter: 2006Q4

REPORT INFORMATION
  Report Type: 
  Country: None (occurrence: None)
  Receive Date: 20061204
  Receipt Date: 20061030
  Transmission Date: 20070319
  Serious: Yes (Other)
  Sender: FDA-Public Use
  Company Number: US-ELI_LILLY_AND_COMPANY-US200611000212

PATIENT
  Age: 23 Year
  Sex: Female

DRUGS (4)
  1. INDERAL LA [Concomitant]
     Dosage: 60 MG, AS NEEDED
  2. SYNTHROID [Concomitant]
     Dosage: 2.5 UG, DAILY (1/D)
  3. CYMBALTA [Suspect]
     Indication: ANXIETY
     Dosage: 60 MG, UNK
     Dates: end: 20061014
  4. CYMBALTA [Suspect]
     Dosage: 60 MG, DAILY (1/D)
     Dates: start: 20061109

REACTIONS (1)
  - THORACIC OUTLET SYNDROME [None]
